FAERS Safety Report 17860876 (Version 1)
Quarter: 2020Q2

REPORT INFORMATION
  Report Type: Spontaneous
  Country: US (occurrence: US)
  Receive Date: 20200604
  Receipt Date: 20200604
  Transmission Date: 20200714
  Serious: No
  Sender: FDA-Public Use
  Company Number: US-GW PHARMA-202005USGW01961

PATIENT

DRUGS (2)
  1. EPIDIOLEX [Suspect]
     Active Substance: CANNABIDIOL
     Indication: EPILEPSY
  2. EPIDIOLEX [Suspect]
     Active Substance: CANNABIDIOL
     Indication: PARTIAL SEIZURES
     Dosage: 920 MILLIGRAM, QD (420 MG AM,500 MG PM)
     Route: 048
     Dates: start: 20190521

REACTIONS (4)
  - Anxiety [Unknown]
  - Product use in unapproved indication [Not Recovered/Not Resolved]
  - Agitation [Unknown]
  - Irritability [Unknown]

NARRATIVE: CASE EVENT DATE: 20190521
